FAERS Safety Report 9168382 (Version 2)
Quarter: 2013Q1

REPORT INFORMATION
  Report Type: Spontaneous
  Country: US (occurrence: US)
  Receive Date: 20130318
  Receipt Date: 20130325
  Transmission Date: 20140127
  Serious: Yes (Death)
  Sender: FDA-Public Use
  Company Number: US-009507513-1303USA007352

PATIENT
  Age: 62 Year
  Sex: Male

DRUGS (1)
  1. TEMODAR [Suspect]
     Dosage: 100 MG, TID, FOR 5 DAYS
     Route: 048

REACTIONS (1)
  - Neoplasm malignant [Fatal]
